FAERS Safety Report 7187118-8 (Version None)
Quarter: 2010Q4

REPORT INFORMATION
  Report Type: 
  Country: None (occurrence: None)
  Receive Date: 20101222
  Receipt Date: 20101209
  Transmission Date: 20110411
  Serious: Yes (Hospitalization)
  Sender: FDA-Public Use
  Company Number: US-WATSON-2010-16045

PATIENT
  Age: 19 Year
  Sex: Female

DRUGS (1)
  1. LIDOCAINE HYDROCHLORIDE [Suspect]
     Indication: ANAESTHESIA
     Dosage: 2% 10CC X 4 PARACEVICAL INJECTIONS (40 CC TOTAL)

REACTIONS (4)
  - GRAND MAL CONVULSION [None]
  - MEDICATION ERROR [None]
  - NYSTAGMUS [None]
  - OVERDOSE [None]
